FAERS Safety Report 17369394 (Version 1)
Quarter: 2020Q1

REPORT INFORMATION
  Report Type: Spontaneous
  Country: US (occurrence: US)
  Receive Date: 20200121
  Receipt Date: 20200121
  Transmission Date: 20200409
  Serious: Yes (Other)
  Sender: FDA-Public Use
  Company Number: None

PATIENT
  Sex: Male

DRUGS (10)
  1. MICARDIS [Concomitant]
     Active Substance: TELMISARTAN
  2. TEMAZEPAM. [Concomitant]
     Active Substance: TEMAZEPAM
  3. REFRESH OPTI [Concomitant]
  4. METOPROLOL TARTRATE. [Concomitant]
     Active Substance: METOPROLOL TARTRATE
  5. ONDANSETROM [Concomitant]
     Active Substance: ONDANSETRON
  6. TRESIBA FLEX [Concomitant]
  7. SUTENT [Suspect]
     Active Substance: SUNITINIB MALATE
     Indication: RENAL CANCER
     Route: 048
     Dates: start: 20181204
  8. MELATONIN [Concomitant]
     Active Substance: MELATONIN
  9. NOVOLOG [Concomitant]
     Active Substance: INSULIN ASPART
  10. LOVAZA [Concomitant]
     Active Substance: OMEGA-3-ACID ETHYL ESTERS

REACTIONS (10)
  - Proctalgia [None]
  - Stomatitis [None]
  - Anorectal discomfort [None]
  - Diarrhoea [None]
  - Diabetes mellitus [None]
  - Constipation [None]
  - Vascular graft [None]
  - Rash [None]
  - Flatulence [None]
  - Depression [None]
